FAERS Safety Report 13370643 (Version 1)
Quarter: 2017Q1

REPORT INFORMATION
  Report Type: Spontaneous
  Country: US (occurrence: US)
  Receive Date: 20170324
  Receipt Date: 20170324
  Transmission Date: 20170429
  Serious: No
  Sender: FDA-Public Use
  Company Number: US-ROCHE-1324078

PATIENT
  Sex: Male

DRUGS (1)
  1. XOLAIR [Suspect]
     Active Substance: OMALIZUMAB
     Indication: PRODUCT USED FOR UNKNOWN INDICATION
     Dosage: 150MG PER 1.2ML VILE
     Route: 058
     Dates: start: 20091223

REACTIONS (4)
  - Tremor [Unknown]
  - Coordination abnormal [Not Recovered/Not Resolved]
  - Myalgia [Unknown]
  - Influenza [Not Recovered/Not Resolved]
